FAERS Safety Report 12240137 (Version 1)
Quarter: 2016Q2

REPORT INFORMATION
  Report Type: Spontaneous
  Country: FR (occurrence: FR)
  Receive Date: 20160405
  Receipt Date: 20160405
  Transmission Date: 20160815
  Serious: Yes (Other)
  Sender: FDA-Public Use
  Company Number: PHHY2016FR043824

PATIENT
  Age: 67 Year
  Sex: Male

DRUGS (4)
  1. IBRUTINIB [Interacting]
     Active Substance: IBRUTINIB
     Indication: MANTLE CELL LYMPHOMA RECURRENT
     Dosage: 560 MG, QD
     Route: 048
     Dates: start: 20150421
  2. CARBAMAZEPINE. [Interacting]
     Active Substance: CARBAMAZEPINE
     Dosage: 200 MG, BID
     Route: 065
  3. BENDAMUSTINE [Concomitant]
     Active Substance: BENDAMUSTINE
     Indication: MANTLE CELL LYMPHOMA RECURRENT
     Route: 065
  4. CARBAMAZEPINE. [Suspect]
     Active Substance: CARBAMAZEPINE
     Indication: ISCHAEMIC NEUROPATHY
     Dosage: 200 MG, BID
     Route: 065
     Dates: end: 20150421

REACTIONS (5)
  - Concomitant disease progression [Unknown]
  - Drug interaction [Unknown]
  - Mantle cell lymphoma [Unknown]
  - Product use issue [Unknown]
  - Drug level increased [Unknown]
